FAERS Safety Report 13601286 (Version 1)
Quarter: 2017Q2

REPORT INFORMATION
  Report Type: Spontaneous
  Country: US (occurrence: US)
  Receive Date: 20170601
  Receipt Date: 20170601
  Transmission Date: 20170830
  Serious: Yes (Life-Threatening, Hospitalization, Disabling)
  Sender: FDA-Public Use
  Company Number: None

PATIENT
  Age: 50 Year
  Sex: Female
  Weight: 79.45 kg

DRUGS (2)
  1. AMITRYPTALINE [Concomitant]
     Active Substance: AMITRIPTYLINE
  2. GABAPENTIN GENERIC [Suspect]
     Active Substance: GABAPENTIN
     Indication: NEURALGIA
     Dosage: 2 PILLS AT BEDTIME BY MOUTH
     Route: 048
     Dates: start: 20160404, end: 20160404

REACTIONS (5)
  - Pruritus [None]
  - Eye discharge [None]
  - Skin ulcer [None]
  - Ocular hyperaemia [None]
  - Lip blister [None]

NARRATIVE: CASE EVENT DATE: 20160404
